FAERS Safety Report 6253001-5 (Version None)
Quarter: 2009Q2

REPORT INFORMATION
  Report Type: 
  Country: None (occurrence: None)
  Receive Date: 20090629
  Receipt Date: 20090629
  Transmission Date: 20091009
  Serious: No
  Sender: FDA-Public Use
  Company Number: None

PATIENT
  Age: 31 Year
  Sex: Female

DRUGS (1)
  1. OCELLA [Suspect]

REACTIONS (3)
  - BACK PAIN [None]
  - CONSTIPATION [None]
  - PRODUCT SUBSTITUTION ISSUE [None]
